FAERS Safety Report 10254004 (Version 1)
Quarter: 2014Q2

REPORT INFORMATION
  Report Type: Report from Study
  Country: US (occurrence: US)
  Receive Date: 20140623
  Receipt Date: 20140623
  Transmission Date: 20141212
  Serious: Yes (Hospitalization)
  Sender: FDA-Public Use
  Company Number: US-ABBVIE-14P-163-1248212-00

PATIENT
  Age: 63 Year
  Sex: Female

DRUGS (16)
  1. HUMIRA [Suspect]
     Indication: PSORIATIC ARTHROPATHY
     Dates: start: 201207
  2. ORACEA [Concomitant]
     Indication: ROSACEA
  3. PRISTIQ [Concomitant]
     Indication: ARTHRITIS
  4. SULFAZINE EC [Concomitant]
     Indication: ARTHRITIS
  5. TRAZODONE [Concomitant]
     Indication: INSOMNIA
  6. ESTROGEN METHYL TESTOSTERONE [Concomitant]
     Indication: HORMONE REPLACEMENT THERAPY
     Dosage: 1.25-2.25
  7. VITAMIN D [Concomitant]
     Indication: VITAMIN D DEFICIENCY
  8. FOLIC ACID [Concomitant]
     Indication: PRODUCT USED FOR UNKNOWN INDICATION
  9. ATORVASTATIN [Concomitant]
     Indication: BLOOD CHOLESTEROL INCREASED
  10. METHOTREXATE [Concomitant]
     Indication: ARTHRITIS
  11. OXYCODONE/ACETAMINOPHEN [Concomitant]
     Indication: ARTHRITIS
     Dosage: 5-3.25MG
  12. ENABLEX [Concomitant]
     Indication: URINARY INCONTINENCE
  13. LYRICA [Concomitant]
     Indication: ARTHRITIS
     Dosage: AT BEDTIME
  14. NEXIUM [Concomitant]
     Indication: ULCER
  15. CELEBREX [Concomitant]
     Indication: PRODUCT USED FOR UNKNOWN INDICATION
     Dosage: 2 PER DAY
  16. CELEBREX [Concomitant]
     Dosage: 1 PER DAY

REACTIONS (7)
  - Heart rate abnormal [Recovered/Resolved]
  - Gallbladder operation [Recovered/Resolved]
  - Injection site pain [Recovering/Resolving]
  - Abdominal pain upper [Unknown]
  - Ulcer [Unknown]
  - Respiratory disorder [Recovered/Resolved]
  - Blood pressure increased [Recovered/Resolved]
